FAERS Safety Report 5723290-1 (Version None)
Quarter: 2008Q2

REPORT INFORMATION
  Report Type: 
  Country: None (occurrence: None)
  Receive Date: 20080430
  Receipt Date: 20080214
  Transmission Date: 20081010
  Serious: Yes (Hospitalization)
  Sender: FDA-Public Use
  Company Number: US-ASTRAZENECA-2008UW03026

PATIENT
  Age: 34 Year
  Sex: Female
  Weight: 56.8 kg

DRUGS (4)
  1. NEXIUM [Suspect]
     Route: 048
  2. TRI-SPRINTEC [Suspect]
     Indication: ORAL CONTRACEPTION
     Dosage: 1 TABLET QD
     Route: 048
     Dates: start: 20070101, end: 20070928
  3. ORTHO TRI-CYCLEN [Concomitant]
  4. VITAMIN CAP [Concomitant]

REACTIONS (2)
  - JAUNDICE [None]
  - LIVER DISORDER [None]
